FAERS Safety Report 4336442-2 (Version None)
Quarter: 2004Q2

REPORT INFORMATION
  Report Type: 
  Country: None (occurrence: None)
  Receive Date: 20040407
  Receipt Date: 20040331
  Transmission Date: 20050107
  Serious: Yes (Other)
  Sender: FDA-Public Use
  Company Number: 2004207069US

PATIENT
  Sex: Female

DRUGS (2)
  1. PROVERA [Suspect]
  2. PREMPRO [Suspect]

REACTIONS (1)
  - BREAST CANCER [None]
